FAERS Safety Report 5866565-8 (Version None)
Quarter: 2008Q3

REPORT INFORMATION
  Report Type: 
  Country: None (occurrence: None)
  Receive Date: 20080902
  Receipt Date: 20080820
  Transmission Date: 20090109
  Serious: Yes (Other)
  Sender: FDA-Public Use
  Company Number: JP-JNJFOC-20080805601

PATIENT

DRUGS (1)
  1. RISPERDAL [Suspect]
     Indication: ANXIETY
     Dosage: AS NECESSARY
     Route: 048

REACTIONS (2)
  - AUTISM [None]
  - PERSONALITY CHANGE [None]
